FAERS Safety Report 5304011-3 (Version None)
Quarter: 2007Q1

REPORT INFORMATION
  Report Type: 
  Country: None (occurrence: None)
  Receive Date: 20070201
  Receipt Date: 20061116
  Transmission Date: 20070707
  Serious: No
  Sender: FDA-Public Use
  Company Number: 2006PV025410

PATIENT
  Age: 59 Year
  Sex: Female
  Weight: 135.1719 kg

DRUGS (2)
  1. BYETTA [Suspect]
     Indication: DIABETES MELLITUS NON-INSULIN-DEPENDENT
     Dosage: 10 MCG;BID;SC
     Route: 058
  2. ASPIRIN [Concomitant]

REACTIONS (7)
  - BALANCE DISORDER [None]
  - EYE SWELLING [None]
  - HEADACHE [None]
  - INJECTION SITE BRUISING [None]
  - PHOTOPSIA [None]
  - SPORTS INJURY [None]
  - VITREOUS FLOATERS [None]
